FAERS Safety Report 8354609-3 (Version None)
Quarter: 2012Q2

REPORT INFORMATION
  Report Type: 
  Country: None (occurrence: None)
  Receive Date: 20120511
  Receipt Date: 20120504
  Transmission Date: 20120825
  Serious: Yes (Death, Hospitalization, Disabling, Other)
  Sender: FDA-Public Use
  Company Number: US-MERCK-1102USA02319

PATIENT
  Age: 69 Year
  Sex: Female

DRUGS (3)
  1. FOSAMAX [Suspect]
     Indication: OSTEOPOROSIS PROPHYLAXIS
     Route: 048
     Dates: start: 20011204, end: 20080101
  2. PLAVIX [Concomitant]
     Indication: THROMBOSIS PROPHYLAXIS
     Route: 065
     Dates: start: 20011201, end: 20090101
  3. FOSAMAX [Suspect]
     Route: 048
     Dates: start: 20061109, end: 20080207

REACTIONS (35)
  - ANAEMIA [None]
  - WOUND INFECTION [None]
  - VERTIGO [None]
  - CHRONIC OBSTRUCTIVE PULMONARY DISEASE [None]
  - SUBCUTANEOUS ABSCESS [None]
  - FATIGUE [None]
  - EAR INFECTION [None]
  - DIARRHOEA [None]
  - DYSPNOEA [None]
  - ABDOMINAL PAIN [None]
  - DENTAL CARIES [None]
  - LIMB INJURY [None]
  - HAEMATOMA [None]
  - UPPER RESPIRATORY TRACT INFECTION [None]
  - HEPATITIS [None]
  - FISTULA [None]
  - SQUAMOUS CELL CARCINOMA [None]
  - CHEST PAIN [None]
  - HYPERLIPIDAEMIA [None]
  - TOOTH DISORDER [None]
  - PALPITATIONS [None]
  - COUGH [None]
  - CERUMEN IMPACTION [None]
  - OSTEONECROSIS OF JAW [None]
  - DEATH [None]
  - OSTEOARTHRITIS [None]
  - PERIPHERAL VASCULAR DISORDER [None]
  - CAROTID ARTERY OCCLUSION [None]
  - CEREBROVASCULAR ACCIDENT [None]
  - OSTEOMYELITIS [None]
  - HYPOACUSIS [None]
  - SENSITIVITY OF TEETH [None]
  - FALL [None]
  - ARTHROPATHY [None]
  - LOOSE TOOTH [None]
